FAERS Safety Report 5191599-9 (Version None)
Quarter: 2006Q4

REPORT INFORMATION
  Report Type: 
  Country: None (occurrence: None)
  Receive Date: 20061219
  Receipt Date: 20061204
  Transmission Date: 20070319
  Serious: Yes (Other)
  Sender: FDA-Public Use
  Company Number: 2006RR-04773

PATIENT
  Age: 39 Year
  Sex: Male

DRUGS (3)
  1. BEZAFIBRATE (BEZAFIBRATE) [Suspect]
     Indication: HYPERCHOLESTEROLAEMIA
     Dosage: 200 MG, QD,
  2. PRAVASTATIN [Suspect]
     Indication: HYPERCHOLESTEROLAEMIA
     Dosage: 10 MG, QD,
  3. SIMVASTATIN [Suspect]
     Dosage: 40 MG, QD,

REACTIONS (3)
  - CONDITION AGGRAVATED [None]
  - DIZZINESS [None]
  - PSORIASIS [None]
